FAERS Safety Report 19184752 (Version 2)
Quarter: 2021Q2

REPORT INFORMATION
  Report Type: Spontaneous
  Country: IN (occurrence: IN)
  Receive Date: 20210427
  Receipt Date: 20210506
  Transmission Date: 20210717
  Serious: Yes (Other)
  Sender: FDA-Public Use
  Company Number: IN-PFIZER INC-K200300316

PATIENT
  Age: 28 Year
  Sex: Male

DRUGS (3)
  1. KETAMINE [Suspect]
     Active Substance: KETAMINE
     Dosage: UNK
     Route: 042
  2. KETAMINE [Suspect]
     Active Substance: KETAMINE
     Dosage: UNK UNK, DAILY (2 TO 4 ML (100?200 MG))
     Route: 030
  3. KETAMINE [Suspect]
     Active Substance: KETAMINE
     Dosage: 1000 MG, DAILY (20 ML PER DAY (APPROXIMATELY 1000 MG) DIVIDED INTO SIX OR SEVEN INJECTIONS PER DAY.)

REACTIONS (6)
  - Drug tolerance [Unknown]
  - Withdrawal syndrome [Recovered/Resolved]
  - Loss of consciousness [Recovered/Resolved]
  - Dreamy state [Recovered/Resolved]
  - Drug abuse [Recovered/Resolved]
  - Drug dependence [Recovered/Resolved]
